FAERS Safety Report 10029210 (Version 2)
Quarter: 2014Q1

REPORT INFORMATION
  Report Type: Spontaneous
  Country: US (occurrence: US)
  Receive Date: 20140321
  Receipt Date: 20140321
  Transmission Date: 20141002
  Serious: Yes (Other)
  Sender: FDA-Public Use
  Company Number: PHHY2014US027348

PATIENT
  Age: 75 Year
  Sex: Female

DRUGS (12)
  1. BACLOFEN INTRATHECAL [Suspect]
     Indication: MUSCLE SPASTICITY
     Dosage: 15 UG, PER DAY
     Route: 037
     Dates: start: 20140130
  2. BACLOFEN INTRATHECAL [Suspect]
     Dosage: 50 UG, QD
     Route: 037
  3. BACLOFEN [Suspect]
     Dosage: (10 MG EVERY MORNING AND 30 MG AT BEDTIME)
     Route: 048
  4. OMEPRAZOLE [Suspect]
     Dosage: 20 MG, DAILY
     Route: 048
  5. SYNTHROID [Suspect]
     Dosage: 0.1 MG, DAILY
     Route: 048
  6. FOSAMAX [Suspect]
     Dosage: 70 MG, QW
     Route: 048
  7. ARICEPT [Suspect]
     Dosage: 10 MG, DAILY
     Route: 048
  8. LIPITOR [Suspect]
     Dosage: 10 MG, DAILY
     Route: 048
  9. CYMBALTA [Suspect]
     Dosage: 60 MG, DAILY
     Route: 048
  10. ASPIRIN [Suspect]
     Dosage: 325 MG, DAILY
     Route: 048
  11. ELAVIL [Suspect]
     Dosage: 50 MG, QHS
     Route: 048
  12. DOMPERIDONE [Suspect]
     Dosage: 20 MG, QID
     Route: 048

REACTIONS (4)
  - Unevaluable event [Unknown]
  - Wound [Unknown]
  - Incision site oedema [Unknown]
  - Cerebrospinal fluid leakage [Unknown]
